FAERS Safety Report 9164006 (Version 1)
Quarter: 2012Q4

REPORT INFORMATION
  Report Type: 
  Country: US (occurrence: US)
  Receive Date: 20121128
  Receipt Date: 20121128
  Transmission Date: 20130627
  Serious: Yes (Hospitalization, Other)
  Sender: FDA-Public Use
  Company Number: US-RB-047042-12

PATIENT
  Age: 47 Year
  Sex: Male

DRUGS (4)
  1. SUBOXONE FILM [Suspect]
     Indication: DRUG DEPENDENCE
     Dosage: Suboxone film
     Route: 060
     Dates: start: 20121022, end: 20121103
  2. LUNESTA [Suspect]
     Indication: INSOMNIA
     Dosage: Dosing details unknown
     Route: 048
     Dates: start: 201210, end: 20121114
  3. TRAMADOL [Concomitant]
     Indication: PAIN
     Dosage: Dosing details unknown
     Route: 065
     Dates: end: 201211
  4. XANAX [Concomitant]
     Indication: SLEEP DISORDER
     Route: 065
     Dates: start: 20121022

REACTIONS (4)
  - Off label use [Recovered/Resolved]
  - Wrong technique in drug usage process [Recovered/Resolved]
  - Vomiting [Recovered/Resolved]
  - Pancreatitis acute [Recovering/Resolving]
